FAERS Safety Report 6804271-3 (Version None)
Quarter: 2010Q2

REPORT INFORMATION
  Report Type: 
  Country: None (occurrence: None)
  Receive Date: 20100628
  Receipt Date: 20070307
  Transmission Date: 20101027
  Serious: No
  Sender: FDA-Public Use
  Company Number: US-PFIZER INC-2007018330

PATIENT
  Sex: Female
  Weight: 63.05 kg

DRUGS (4)
  1. XALATAN [Suspect]
     Indication: INTRAOCULAR PRESSURE INCREASED
     Dosage: ONE DROP PER EYE
     Route: 031
     Dates: start: 20030101
  2. VITAMINS [Concomitant]
  3. CELEXA [Concomitant]
  4. ATENOLOL [Concomitant]
     Indication: BLOOD PRESSURE

REACTIONS (1)
  - DRY EYE [None]
